FAERS Safety Report 12099378 (Version 1)
Quarter: 2016Q1

REPORT INFORMATION
  Report Type: Spontaneous
  Country: US (occurrence: None)
  Receive Date: 20160219
  Receipt Date: 20160219
  Transmission Date: 20160526
  Serious: Yes (Death)
  Sender: FDA-Public Use
  Company Number: None

PATIENT
  Age: 58 Year
  Sex: Male

DRUGS (2)
  1. COMBIVENT [Suspect]
     Active Substance: ALBUTEROL SULFATE\IPRATROPIUM BROMIDE
     Indication: LUNG TRANSPLANT
     Dosage: ONE PUFF QID AS NEEDED RESPIRATORY
     Route: 055
     Dates: start: 20150622
  2. CLOTRIMAZOLE. [Suspect]
     Active Substance: CLOTRIMAZOLE
     Indication: LUNG TRANSPLANT
     Dosage: 1 LOZENGER AC BREAKFAST/ ORAL
     Route: 048
     Dates: start: 20150622

REACTIONS (1)
  - Death [None]

NARRATIVE: CASE EVENT DATE: 20160215
